FAERS Safety Report 6944519-8 (Version None)
Quarter: 2010Q3

REPORT INFORMATION
  Report Type: 
  Country: None (occurrence: None)
  Receive Date: 20100827
  Receipt Date: 20100816
  Transmission Date: 20110219
  Serious: Yes (Other)
  Sender: FDA-Public Use
  Company Number: GB-PFIZER INC-2010103720

PATIENT
  Age: 75 Year
  Sex: Female

DRUGS (8)
  1. TOVIAZ [Suspect]
     Dosage: 4 MG, UNK
  2. TOVIAZ [Suspect]
     Dosage: 8 MG, UNK
  3. METHOTREXATE [Concomitant]
     Dosage: UNK
  4. NAPROXEN [Concomitant]
     Dosage: UNK
  5. ONE-ALPHA [Concomitant]
     Dosage: UNK
  6. FOLIC ACID [Concomitant]
     Dosage: UNK
  7. CALCIUM [Concomitant]
     Dosage: UNK
  8. CHONDROITIN/GLUCOSAMINE [Concomitant]
     Dosage: UNK

REACTIONS (1)
  - TOOTH FRACTURE [None]
